FAERS Safety Report 6292044-2 (Version None)
Quarter: 2009Q3

REPORT INFORMATION
  Report Type: 
  Country: None (occurrence: None)
  Receive Date: 20090731
  Receipt Date: 20090723
  Transmission Date: 20100115
  Serious: Yes (Hospitalization)
  Sender: FDA-Public Use
  Company Number: US-BIOGENIDEC-2009BI015658

PATIENT
  Age: 29 Year
  Sex: Female

DRUGS (4)
  1. TYSABRI [Suspect]
     Indication: MULTIPLE SCLEROSIS
     Route: 042
     Dates: start: 20070426
  2. WELLBUTRIN [Concomitant]
  3. EFFEXOR [Concomitant]
  4. BACLOFEN [Concomitant]
     Indication: MUSCLE SPASTICITY
     Route: 037

REACTIONS (2)
  - INCISION SITE OEDEMA [None]
  - MUSCLE SPASTICITY [None]
